FAERS Safety Report 4439391-4 (Version None)
Quarter: 2004Q3

REPORT INFORMATION
  Report Type: 
  Country: None (occurrence: None)
  Receive Date: 20040728
  Receipt Date: 20040420
  Transmission Date: 20050211
  Serious: No
  Sender: FDA-Public Use
  Company Number: USA040465460

PATIENT
  Age: 24 Year
  Sex: Female
  Weight: 49 kg

DRUGS (3)
  1. STRATTERA [Suspect]
     Indication: ATTENTION DEFICIT/HYPERACTIVITY DISORDER
     Dosage: 40 MG IN THE MORNING
     Dates: start: 20040310, end: 20040417
  2. NUVARING [Concomitant]
  3. SUDAFED 12 HOUR [Concomitant]

REACTIONS (5)
  - FATIGUE [None]
  - FEELING HOT AND COLD [None]
  - INSOMNIA [None]
  - MOOD SWINGS [None]
  - SOMNOLENCE [None]
